FAERS Safety Report 7942171-6 (Version None)
Quarter: 2011Q4

REPORT INFORMATION
  Report Type: 
  Country: None (occurrence: None)
  Receive Date: 20111123
  Receipt Date: 20111123
  Transmission Date: 20120403
  Serious: Yes (Other)
  Sender: FDA-Public Use
  Company Number: None

PATIENT
  Age: 46 Year
  Sex: Female
  Weight: 110.2241 kg

DRUGS (1)
  1. FLEXERIL [Suspect]
     Indication: MUSCLE SPASMS
     Dosage: 10 MG 2 X DAY

REACTIONS (2)
  - CRYING [None]
  - SUICIDAL IDEATION [None]
